FAERS Safety Report 5526287-X (Version None)
Quarter: 2007Q4

REPORT INFORMATION
  Report Type: 
  Country: None (occurrence: None)
  Receive Date: 20071127
  Receipt Date: 20071116
  Transmission Date: 20080405
  Serious: Yes (Hospitalization)
  Sender: FDA-Public Use
  Company Number: GB-JNJFOC-20071005963

PATIENT
  Sex: Female

DRUGS (5)
  1. REMICADE [Suspect]
     Indication: CROHN'S DISEASE
     Route: 042
  2. PREDNISOLONE [Concomitant]
     Indication: CROHN'S DISEASE
     Route: 048
  3. 6MP [Concomitant]
  4. RISEDRONATE SODIUM [Concomitant]
  5. CALCIUM FORTE [Concomitant]

REACTIONS (4)
  - INFUSION RELATED REACTION [None]
  - JOINT STIFFNESS [None]
  - MYALGIA [None]
  - RASH [None]
